FAERS Safety Report 12703593 (Version 1)
Quarter: 2016Q3

REPORT INFORMATION
  Report Type: Spontaneous
  Country: CN (occurrence: CN)
  Receive Date: 20160831
  Receipt Date: 20160831
  Transmission Date: 20161109
  Serious: Yes (Life-Threatening, Hospitalization)
  Sender: FDA-Public Use
  Company Number: PHHY2016CN118676

PATIENT
  Age: 48 Year
  Sex: Male
  Weight: 70 kg

DRUGS (3)
  1. LESCOL [Suspect]
     Active Substance: FLUVASTATIN SODIUM
     Indication: CORONARY ARTERY DISEASE
     Dosage: 40 MG, QD
     Route: 048
     Dates: start: 20151205, end: 20151205
  2. LESCOL [Suspect]
     Active Substance: FLUVASTATIN SODIUM
     Indication: HYPERTENSION
  3. LESCOL [Suspect]
     Active Substance: FLUVASTATIN SODIUM
     Indication: TYPE 2 DIABETES MELLITUS

REACTIONS (1)
  - Chest pain [Recovering/Resolving]

NARRATIVE: CASE EVENT DATE: 20151206
